FAERS Safety Report 9128030 (Version 1)
Quarter: 2013Q1

REPORT INFORMATION
  Report Type: Spontaneous
  Country: US (occurrence: US)
  Receive Date: 20130228
  Receipt Date: 20130228
  Transmission Date: 20140127
  Serious: No
  Sender: FDA-Public Use
  Company Number: US-ROXANE LABORATORIES, INC.-2013-RO-00322RO

PATIENT
  Age: 77 Year
  Sex: Male

DRUGS (5)
  1. PREDNISONE [Suspect]
     Dates: end: 201302
  2. PREDNISONE [Suspect]
     Dates: start: 201302, end: 201302
  3. PREDNISONE [Suspect]
     Dates: start: 201302
  4. JAKAFI [Suspect]
     Indication: MYELOFIBROSIS
     Dosage: 30 MG
     Route: 048
     Dates: start: 20130105
  5. IBUPROFEN [Concomitant]

REACTIONS (3)
  - Rash [Unknown]
  - Neck pain [Unknown]
  - Musculoskeletal pain [Unknown]
